FAERS Safety Report 4626856-5 (Version None)
Quarter: 2005Q1

REPORT INFORMATION
  Report Type: 
  Country: None (occurrence: None)
  Receive Date: 20050331
  Receipt Date: 20050317
  Transmission Date: 20050727
  Serious: Yes (Other)
  Sender: FDA-Public Use
  Company Number: 172518

PATIENT
  Age: 57 Year
  Sex: Female
  Weight: 65.7716 kg

DRUGS (6)
  1. AVONEX [Suspect]
     Indication: MULTIPLE SCLEROSIS
     Dosage: 30 UG;QW; IM
     Route: 030
     Dates: start: 19960701, end: 20030430
  2. PREMARIN [Concomitant]
  3. BACLOFEN [Concomitant]
  4. NITROFURANTOIN [Concomitant]
  5. HUMALOG [Concomitant]
  6. MEVACOR [Concomitant]

REACTIONS (12)
  - BLOOD CREATININE DECREASED [None]
  - BONE MARROW DEPRESSION [None]
  - CONTUSION [None]
  - DIABETES MELLITUS INADEQUATE CONTROL [None]
  - HAEMORRHAGE [None]
  - HEPATIC CIRRHOSIS [None]
  - HEPATIC STEATOSIS [None]
  - HYPERLIPIDAEMIA [None]
  - HYPERSPLENISM [None]
  - INJECTION SITE HAEMORRHAGE [None]
  - LEUKOPENIA [None]
  - THROMBOCYTOPENIA [None]
